FAERS Safety Report 12167864 (Version 1)
Quarter: 2016Q1

REPORT INFORMATION
  Report Type: Spontaneous
  Country: US (occurrence: None)
  Receive Date: 20160309
  Receipt Date: 20160309
  Transmission Date: 20160526
  Serious: Yes (Hospitalization, Disabling)
  Sender: FDA-Public Use
  Company Number: None

PATIENT
  Age: 18 Year
  Sex: Male
  Weight: 94.35 kg

DRUGS (4)
  1. OLANZAPINE 15MG [Suspect]
     Active Substance: OLANZAPINE
     Indication: PRODUCT USED FOR UNKNOWN INDICATION
     Dosage: 15 MG 1 NIGHTLY BY MOUTH
     Route: 048
     Dates: start: 2011
  2. MULTI-VITAMIN [Concomitant]
     Active Substance: .ALPHA.-TOCOPHEROL ACETATE, DL-\ASCORBIC ACID\CYANOCOBALAMIN\FLUORIDE ION\FOLIC ACID\NIACIN\PYRIDOXINE\RIBOFLAVIN\THIAMINE\VITAMIN A\VITAMIN D
  3. VITAMIN C [Concomitant]
     Active Substance: ASCORBIC ACID
  4. PRO-BIOTIC [Concomitant]

REACTIONS (13)
  - Anxiety [None]
  - Appetite disorder [None]
  - Blood cholesterol increased [None]
  - Stress [None]
  - Thirst [None]
  - Dehydration [None]
  - Speech disorder [None]
  - Pollakiuria [None]
  - Dyspnoea [None]
  - Dry mouth [None]
  - Cognitive disorder [None]
  - Paranoia [None]
  - Overweight [None]
